FAERS Safety Report 13846545 (Version 1)
Quarter: 2017Q3

REPORT INFORMATION
  Report Type: Spontaneous
  Country: US (occurrence: US)
  Receive Date: 20170808
  Receipt Date: 20170808
  Transmission Date: 20171127
  Serious: No
  Sender: FDA-Public Use
  Company Number: US-SUNOVION-2017SUN001526

PATIENT
  Sex: Female

DRUGS (1)
  1. XOPENEX [Suspect]
     Active Substance: LEVALBUTEROL HYDROCHLORIDE
     Dosage: 1-2 PUFFS, Q4H AS NEEDED
     Route: 055

REACTIONS (3)
  - Inappropriate schedule of drug administration [Unknown]
  - Cough [Unknown]
  - Throat irritation [Unknown]
